FAERS Safety Report 16351028 (Version 1)
Quarter: 2019Q2

REPORT INFORMATION
  Report Type: Spontaneous
  Country: US (occurrence: US)
  Receive Date: 20190524
  Receipt Date: 20190524
  Transmission Date: 20190711
  Serious: No
  Sender: FDA-Public Use
  Company Number: US-SHIRE-US201916900

PATIENT
  Age: 54 Year
  Sex: Male

DRUGS (1)
  1. XIIDRA [Suspect]
     Active Substance: LIFITEGRAST
     Indication: DRY EYE
     Route: 047

REACTIONS (5)
  - Dysgeusia [Recovered/Resolved]
  - Instillation site irritation [Recovered/Resolved]
  - Instillation site reaction [Recovered/Resolved]
  - Instillation site discomfort [Recovered/Resolved]
  - Vision blurred [Recovered/Resolved]
